FAERS Safety Report 7358899-5 (Version None)
Quarter: 2011Q1

REPORT INFORMATION
  Report Type: 
  Country: None (occurrence: None)
  Receive Date: 20110317
  Receipt Date: 20110308
  Transmission Date: 20110831
  Serious: Yes (Other)
  Sender: FDA-Public Use
  Company Number: US-RB-022661-11

PATIENT
  Age: 71 Year
  Sex: Male

DRUGS (2)
  1. MUCINEX DM [Suspect]
     Dosage: DOSE TAKEN AT 10:15AM ON 04-MAR-2011
     Route: 048
  2. CHOLESTEROL MEDICATION [Concomitant]

REACTIONS (5)
  - FALL [None]
  - VOMITING [None]
  - ABDOMINAL DISCOMFORT [None]
  - HEAD INJURY [None]
  - DIZZINESS [None]
